FAERS Safety Report 6037677-3 (Version None)
Quarter: 2009Q1

REPORT INFORMATION
  Report Type: 
  Country: None (occurrence: None)
  Receive Date: 20090114
  Receipt Date: 20090102
  Transmission Date: 20090719
  Serious: Yes (Other)
  Sender: FDA-Public Use
  Company Number: ES-PFIZER INC-2009151023

PATIENT

DRUGS (4)
  1. LYRICA [Suspect]
     Indication: FIBROMYALGIA
     Dosage: 75 MG, 2X/DAY
     Route: 048
     Dates: start: 20080821, end: 20081101
  2. OMEPRAZOLE [Concomitant]
     Dosage: 20 MG, 1X/DAY
     Route: 048
     Dates: start: 20080130
  3. TERMALGIN [Concomitant]
     Dosage: 650 MG, UNK
     Route: 048
     Dates: start: 20080714
  4. TICLID [Concomitant]
     Dosage: 250 MG, UNK
     Route: 048
     Dates: start: 20080401

REACTIONS (4)
  - EYE SWELLING [None]
  - MIGRAINE [None]
  - OCULAR HYPERAEMIA [None]
  - OEDEMA PERIPHERAL [None]
